FAERS Safety Report 8870073 (Version 1)
Quarter: 2012Q4

REPORT INFORMATION
  Report Type: Spontaneous
  Country: US (occurrence: None)
  Receive Date: 20121025
  Receipt Date: 20121025
  Transmission Date: 20130627
  Serious: Yes (Life-Threatening, Hospitalization)
  Sender: FDA-Public Use
  Company Number: None

PATIENT
  Age: 26 Year
  Sex: Female
  Weight: 48.54 kg

DRUGS (1)
  1. MIRENA IUD [Suspect]
     Indication: CONTRACEPTION
     Dosage: One Device Implanted
     Route: 015
     Dates: start: 20080401, end: 20101228

REACTIONS (13)
  - Abdominal pain [None]
  - Menstrual disorder [None]
  - Alopecia [None]
  - Depression [None]
  - Hyperhidrosis [None]
  - Asthenia [None]
  - Fatigue [None]
  - Dizziness [None]
  - Mood altered [None]
  - Weight increased [None]
  - Abdominal pain upper [None]
  - Device dislocation [None]
  - Device dislocation [None]
